FAERS Safety Report 10376202 (Version 1)
Quarter: 2014Q3

REPORT INFORMATION
  Report Type: Spontaneous
  Country: US (occurrence: US)
  Receive Date: 20140811
  Receipt Date: 20140811
  Transmission Date: 20150326
  Serious: No
  Sender: FDA-Public Use
  Company Number: US-ASTRAZENECA-2014SE05639

PATIENT
  Age: 69 Year
  Sex: Female
  Weight: 68 kg

DRUGS (9)
  1. ARIMIDEX [Suspect]
     Active Substance: ANASTROZOLE
     Indication: BREAST CANCER
     Route: 048
     Dates: start: 201301
  2. LOTENSIN [Concomitant]
     Active Substance: BENAZEPRIL HYDROCHLORIDE
     Indication: CARDIOVASCULAR DISORDER
     Dosage: UNK UNK
  3. DIFLUCAN [Concomitant]
     Active Substance: FLUCONAZOLE
     Indication: HAEMATURIA
  4. SYNTHROID [Concomitant]
     Active Substance: LEVOTHYROXINE SODIUM
     Indication: THYROID DISORDER
     Dosage: UNK UNK
  5. OTHER  HYPERTENSIVE MEDICATION [Concomitant]
     Indication: CARDIOVASCULAR DISORDER
     Dosage: UNK UNK
  6. NEURONTIN [Concomitant]
     Active Substance: GABAPENTIN
  7. AMYTRIPTYLINE [Concomitant]
     Indication: MUSCLE RELAXANT THERAPY
     Dosage: UNK UNK
  8. XANAX [Concomitant]
     Active Substance: ALPRAZOLAM
     Indication: SLEEP DISORDER
     Dosage: UNK 1/2 TABLET PRN
  9. DIFLUCAN [Concomitant]
     Active Substance: FLUCONAZOLE
     Indication: METABOLIC DISORDER

REACTIONS (10)
  - Drug dose omission [Unknown]
  - Vaginismus [Unknown]
  - Haematuria [Unknown]
  - Bacterial infection [Unknown]
  - Bladder disorder [Unknown]
  - Vulvovaginal burning sensation [Unknown]
  - Pollakiuria [Unknown]
  - Adverse event [Unknown]
  - Hypertension [Unknown]
  - Feeling abnormal [Unknown]

NARRATIVE: CASE EVENT DATE: 2013
